FAERS Safety Report 24553537 (Version 1)
Quarter: 2024Q4

REPORT INFORMATION
  Report Type: Report from Study
  Country: US (occurrence: US)
  Receive Date: 20241028
  Receipt Date: 20241028
  Transmission Date: 20250114
  Serious: No
  Sender: ROCHE
  Company Number: US-ROCHE-3518459

PATIENT
  Sex: Female
  Weight: 29.48 kg

DRUGS (4)
  1. NUTROPIN AQ [Suspect]
     Active Substance: SOMATROPIN
     Indication: Short stature
     Route: 058
     Dates: start: 202302
  2. FOCALIN XR [Concomitant]
     Active Substance: DEXMETHYLPHENIDATE HYDROCHLORIDE
     Indication: Attention deficit hyperactivity disorder
     Route: 048
     Dates: start: 2021
  3. VIACTIV CALCIUM PLUS VITAMIN D + K [Concomitant]
     Dosage: DOSAGE IS FOR THE CALCIUM COMPONENT OF THIS MEDICATION
     Route: 048
     Dates: start: 202302
  4. VIACTIV CALCIUM PLUS VITAMIN D + K [Concomitant]
     Route: 048
     Dates: start: 202302

REACTIONS (2)
  - Scoliosis [Not Recovered/Not Resolved]
  - Growth retardation [Not Recovered/Not Resolved]

NARRATIVE: CASE EVENT DATE: 20240123
